FAERS Safety Report 7671495-5 (Version None)
Quarter: 2011Q3

REPORT INFORMATION
  Report Type: 
  Country: None (occurrence: None)
  Receive Date: 20110804
  Receipt Date: 20110708
  Transmission Date: 20111222
  Serious: Yes (Other)
  Sender: FDA-Public Use
  Company Number: 75573

PATIENT
  Sex: Female

DRUGS (1)
  1. 10% BENZOYL PEROXIDE OXY SPOT TREATMENT [Suspect]
     Indication: ACNE
     Dosage: 1X/DAY, TOPICAL
     Route: 061

REACTIONS (1)
  - APPLICATION SITE EROSION [None]
